FAERS Safety Report 6730213-5 (Version None)
Quarter: 2010Q2

REPORT INFORMATION
  Report Type: 
  Country: None (occurrence: None)
  Receive Date: 20100518
  Receipt Date: 20090708
  Transmission Date: 20101027
  Serious: No
  Sender: FDA-Public Use
  Company Number: US-TYCO HEALTHCARE/MALLINCKRODT-T200901353

PATIENT
  Age: 61 Year
  Sex: Male

DRUGS (2)
  1. METHYLIN ER [Suspect]
  2. METHYLPHENIDATE HCL [Concomitant]
     Dosage: UNK
     Dates: start: 20040101

REACTIONS (5)
  - APATHY [None]
  - DRUG EFFECT DECREASED [None]
  - IRRITABILITY [None]
  - PSYCHOMOTOR RETARDATION [None]
  - SOMNOLENCE [None]
